FAERS Safety Report 6419711-1 (Version None)
Quarter: 2009Q4

REPORT INFORMATION
  Report Type: 
  Country: None (occurrence: None)
  Receive Date: 20091013
  Receipt Date: 20090818
  Transmission Date: 20100525
  Serious: No
  Sender: FDA-Public Use
  Company Number: 2009BM000192

PATIENT
  Age: 20 Year
  Sex: Male
  Weight: 49.8957 kg

DRUGS (3)
  1. KUVAN [Suspect]
     Indication: PHENYLKETONURIA
     Dosage: 1000 MG;QD;PO; 500 MG;QD;PO
     Route: 048
     Dates: start: 20090801, end: 20090801
  2. KUVAN [Suspect]
     Indication: PHENYLKETONURIA
     Dosage: 1000 MG;QD;PO; 500 MG;QD;PO
     Route: 048
     Dates: start: 20090801, end: 20090815
  3. CARNITINE (CON.) [Concomitant]

REACTIONS (4)
  - ABDOMINAL DISCOMFORT [None]
  - ABDOMINAL PAIN UPPER [None]
  - DIARRHOEA [None]
  - GASTRIC DISORDER [None]
